FAERS Safety Report 7865860-0 (Version None)
Quarter: 2011Q4

REPORT INFORMATION
  Report Type: 
  Country: None (occurrence: None)
  Receive Date: 20111028
  Receipt Date: 20110310
  Transmission Date: 20120403
  Serious: No
  Sender: FDA-Public Use
  Company Number: US-GLAXOSMITHKLINE-A0917564A

PATIENT
  Age: 38 Year
  Sex: Female

DRUGS (2)
  1. CALCIUM CARBONATE [Concomitant]
  2. ADVAIR DISKUS 100/50 [Suspect]
     Indication: ASTHMA
     Dosage: 1PUFF TWICE PER DAY
     Route: 055
     Dates: start: 20110306, end: 20110306

REACTIONS (5)
  - DIZZINESS [None]
  - PALPITATIONS [None]
  - TREMOR [None]
  - HYPERHIDROSIS [None]
  - HEADACHE [None]
